FAERS Safety Report 12008097 (Version 3)
Quarter: 2016Q1

REPORT INFORMATION
  Report Type: Report from Study
  Country: US (occurrence: US)
  Receive Date: 20160205
  Receipt Date: 20160224
  Transmission Date: 20160526
  Serious: No
  Sender: FDA-Public Use
  Company Number: US-AMGEN-USASL2016010875

PATIENT
  Age: 53 Year
  Sex: Female

DRUGS (1)
  1. ENBREL [Suspect]
     Active Substance: ETANERCEPT
     Indication: PSORIASIS
     Dosage: 50 MG, 2 TIMES/WK
     Route: 065
     Dates: start: 20160113

REACTIONS (5)
  - Drug dose omission [Unknown]
  - Wrong technique in product usage process [Unknown]
  - Underdose [Unknown]
  - No therapeutic response [Unknown]
  - Device difficult to use [Unknown]

NARRATIVE: CASE EVENT DATE: 201601
